FAERS Safety Report 9087816 (Version 2)
Quarter: 2013Q4

REPORT INFORMATION
  Report Type: Spontaneous
  Country: US (occurrence: US)
  Receive Date: 20130131
  Receipt Date: 20131204
  Transmission Date: 20140711
  Serious: No
  Sender: FDA-Public Use
  Company Number: US-PFIZER INC-2013032460

PATIENT
  Age: 51 Year
  Sex: Female
  Weight: 54.42 kg

DRUGS (5)
  1. LYRICA [Suspect]
     Indication: INTERVERTEBRAL DISC PROTRUSION
     Dosage: 75 MG, 2X/DAY
     Dates: start: 20130107
  2. LYRICA [Suspect]
     Indication: FIBROMYALGIA
     Dosage: 150 MG, UNK
  3. LYRICA [Suspect]
     Indication: CARDIOVASCULAR DISORDER
     Dosage: 75 MG, UNK
  4. LYRICA [Suspect]
     Dosage: 125 MG, UNK
  5. TOPAMAX [Suspect]
     Indication: MIGRAINE
     Dosage: UNK

REACTIONS (8)
  - Off label use [Not Recovered/Not Resolved]
  - Weight increased [Unknown]
  - Food craving [Unknown]
  - Bowel movement irregularity [Unknown]
  - Weight decreased [Unknown]
  - Local swelling [Unknown]
  - Fibromyalgia [Unknown]
  - Malaise [Unknown]
